FAERS Safety Report 26019407 (Version 3)
Quarter: 2025Q4

REPORT INFORMATION
  Report Type: Report from Study
  Country: EG (occurrence: EG)
  Receive Date: 20251110
  Receipt Date: 20251125
  Transmission Date: 20260118
  Serious: Yes (Hospitalization, Other)
  Sender: NOVARTIS
  Company Number: EG-002147023-NVSC2025EG171735

PATIENT
  Sex: Female
  Weight: 98 kg

DRUGS (5)
  1. ENTRESTO [Suspect]
     Active Substance: SACUBITRIL\VALSARTAN
     Indication: Cardiac failure
     Dosage: 50 MG, BID (STARTED ONE YEAR AGO)
     Route: 048
     Dates: start: 2023
  2. ENTRESTO [Suspect]
     Active Substance: SACUBITRIL\VALSARTAN
     Dosage: 150 MG, OTHER (ONE TABLET OF ENTRESTO 50MG IN THE MORNING AND ENTRESTO 100MG IN THE EVENING (OFF-LAB
     Route: 048
     Dates: end: 202502
  3. ENTRESTO [Suspect]
     Active Substance: SACUBITRIL\VALSARTAN
     Dosage: 50 MG, BID
     Route: 048
     Dates: start: 202502, end: 202505
  4. ENTRESTO [Suspect]
     Active Substance: SACUBITRIL\VALSARTAN
     Dosage: 150 MG, OTHER (ONE TABLET OF ENTRESTO 50MG IN THE MORNING AND ENTRESTO 100MG IN THE EVENING (OFF-LAB
     Route: 048
     Dates: start: 202505
  5. CARBOPLATIN [Concomitant]
     Active Substance: CARBOPLATIN
     Indication: Product used for unknown indication
     Dosage: UNK
     Route: 065

REACTIONS (9)
  - Diarrhoea [Recovered/Resolved]
  - Vomiting [Recovered/Resolved]
  - Ejection fraction decreased [Recovered/Resolved]
  - Metastases to liver [Recovered/Resolved]
  - Metastases to lymph nodes [Not Recovered/Not Resolved]
  - Decreased immune responsiveness [Not Recovered/Not Resolved]
  - Hypotension [Recovering/Resolving]
  - Hypertension [Recovered/Resolved]
  - Off label use [Unknown]

NARRATIVE: CASE EVENT DATE: 20240101
